FAERS Safety Report 7817392-3 (Version None)
Quarter: 2011Q4

REPORT INFORMATION
  Report Type: 
  Country: None (occurrence: None)
  Receive Date: 20111017
  Receipt Date: 20110923
  Transmission Date: 20120403
  Serious: Yes (Death, Hospitalization)
  Sender: FDA-Public Use
  Company Number: GB-ROCHE-801704

PATIENT
  Age: 60 Year
  Sex: Male

DRUGS (4)
  1. VINCRISTINE [Suspect]
     Indication: LYMPHOMA
     Route: 065
  2. PREDNISOLONE [Suspect]
     Indication: LYMPHOMA
     Route: 065
  3. RITUXIMAB [Suspect]
     Indication: LYMPHOMA
     Route: 065
  4. CYCLOPHOSPHAMIDE [Suspect]
     Indication: LYMPHOMA
     Route: 065

REACTIONS (1)
  - CEREBRAL FUNGAL INFECTION [None]
